FAERS Safety Report 21669208 (Version 2)
Quarter: 2022Q4

REPORT INFORMATION
  Report Type: Spontaneous
  Country: US (occurrence: US)
  Receive Date: 20221201
  Receipt Date: 20221214
  Transmission Date: 20230112
  Serious: No
  Sender: FDA-Public Use
  Company Number: US-BIOVITRUM-2022US13761

PATIENT
  Age: 0 Year
  Sex: Female

DRUGS (2)
  1. SYNAGIS [Suspect]
     Active Substance: PALIVIZUMAB
     Indication: Premature baby
     Dosage: 122.04
     Dates: start: 20220328
  2. SYNAGIS [Suspect]
     Active Substance: PALIVIZUMAB
     Dosage: 122.04
     Dates: start: 20221003

REACTIONS (5)
  - SARS-CoV-2 test positive [Unknown]
  - Fatigue [Unknown]
  - Nasal congestion [Unknown]
  - Vomiting [Unknown]
  - Secretion discharge [Unknown]

NARRATIVE: CASE EVENT DATE: 20221118
